FAERS Safety Report 9834976 (Version 1)
Quarter: 2014Q1

REPORT INFORMATION
  Report Type: Spontaneous
  Country: US (occurrence: US)
  Receive Date: 20140122
  Receipt Date: 20140122
  Transmission Date: 20141002
  Serious: No
  Sender: FDA-Public Use
  Company Number: US-BAUSCH-BL-2013-005493

PATIENT
  Age: 32 Year
  Sex: Female
  Weight: 72.64 kg

DRUGS (1)
  1. ALAWAY (KETOTIFEN FUMARATE OPHTHALMIC SOLUTION) [Suspect]
     Indication: EYE PRURITUS
     Dosage: 1 DROP; LEFT EYE; ONCE
     Route: 047
     Dates: start: 20131013, end: 20131013

REACTIONS (2)
  - Expired drug administered [Recovered/Resolved]
  - Abnormal sensation in eye [Not Recovered/Not Resolved]
